FAERS Safety Report 4914194-2 (Version None)
Quarter: 2006Q1

REPORT INFORMATION
  Report Type: 
  Country: None (occurrence: None)
  Receive Date: 20060216
  Receipt Date: 20060202
  Transmission Date: 20060701
  Serious: Yes (Disabling, Other)
  Sender: FDA-Public Use
  Company Number: HQWYE644203FEB06

PATIENT
  Sex: Female

DRUGS (10)
  1. ENBREL [Suspect]
     Indication: RHEUMATOID ARTHRITIS
     Route: 058
     Dates: start: 20020401, end: 20060101
  2. ENBREL [Suspect]
     Route: 058
     Dates: start: 20060101
  3. UNSPECIFIED PAIN MEDICATION [Concomitant]
     Indication: TOOTHACHE
     Dosage: UNKNOWN DOSE AND FREQUENCY
     Route: 048
  4. UNSPECIFIED ANTI-INFECTIVE AGENT [Concomitant]
     Indication: TOOTH ABSCESS
     Dosage: UNKNOWN
     Route: 048
  5. PREDNISOLONE [Concomitant]
     Indication: RHEUMATOID ARTHRITIS
     Dosage: 7 MG WHILE RECEIVING ENBREL
  6. PREDNISOLONE [Concomitant]
     Dosage: 10 MG WHILE ENBREL WAS STOPPED
     Route: 048
  7. PREDNISOLONE [Concomitant]
     Dosage: 7 MG AFTER ENBREL WAS RESUMED
     Route: 048
  8. ARAVA [Concomitant]
     Indication: RHEUMATOID ARTHRITIS
     Dosage: UNKNOWN DOSE AND FREQUENCY
     Route: 048
  9. CALCIUM GLUCONATE [Concomitant]
  10. FOSAMAX [Concomitant]

REACTIONS (5)
  - ABSCESS ORAL [None]
  - BLINDNESS [None]
  - DISEASE PROGRESSION [None]
  - TOOTH EXTRACTION [None]
  - UVEITIS [None]
